FAERS Safety Report 4768461-6 (Version None)
Quarter: 2005Q3

REPORT INFORMATION
  Report Type: 
  Country: None (occurrence: None)
  Receive Date: 20050914
  Receipt Date: 20050722
  Transmission Date: 20060218
  Serious: Yes (Other)
  Sender: FDA-Public Use
  Company Number: DE-MERCK-0507DEU00188

PATIENT
  Age: 39 Year
  Sex: Female

DRUGS (1)
  1. ZOCOR [Suspect]
     Route: 048

REACTIONS (3)
  - ABORTION MISSED [None]
  - DRUG EXPOSURE DURING PREGNANCY [None]
  - PREGNANCY [None]
